FAERS Safety Report 12088920 (Version 1)
Quarter: 2016Q1

REPORT INFORMATION
  Report Type: Spontaneous
  Country: US (occurrence: US)
  Receive Date: 20160218
  Receipt Date: 20160218
  Transmission Date: 20160526
  Serious: No
  Sender: FDA-Public Use
  Company Number: US-GLAXOSMITHKLINE-US2016023073

PATIENT
  Age: 45 Year
  Sex: Male

DRUGS (2)
  1. ALLI [Suspect]
     Active Substance: ORLISTAT
     Indication: WEIGHT LOSS DIET
     Dosage: UNK
     Dates: start: 2014
  2. ALLI [Suspect]
     Active Substance: ORLISTAT
     Indication: WEIGHT CONTROL
     Dosage: UNK
     Dates: start: 20160105

REACTIONS (2)
  - Steatorrhoea [Recovered/Resolved]
  - Drug ineffective [Unknown]
